FAERS Safety Report 5050542-3 (Version None)
Quarter: 2006Q3

REPORT INFORMATION
  Report Type: 
  Country: None (occurrence: None)
  Receive Date: 20060713
  Receipt Date: 20040719
  Transmission Date: 20061208
  Serious: Yes (Hospitalization)
  Sender: FDA-Public Use
  Company Number: US-GLAXOSMITHKLINE-A0519857A

PATIENT
  Sex: Female
  Weight: 71.4 kg

DRUGS (4)
  1. PAXIL [Suspect]
     Indication: PANIC ATTACK
     Dosage: 20MG AT NIGHT
     Route: 048
     Dates: start: 19950101
  2. PREMARIN [Concomitant]
  3. LIPITOR [Concomitant]
  4. BUSPAR [Concomitant]

REACTIONS (10)
  - DISABILITY [None]
  - DIZZINESS [None]
  - DRUG DEPENDENCE [None]
  - DRUG WITHDRAWAL SYNDROME [None]
  - HALLUCINATION [None]
  - PARAESTHESIA [None]
  - PERFORMANCE STATUS DECREASED [None]
  - PSYCHOTIC DISORDER [None]
  - TINNITUS [None]
  - VERTIGO [None]
